FAERS Safety Report 8070620-4 (Version None)
Quarter: 2012Q1

REPORT INFORMATION
  Report Type: 
  Country: None (occurrence: None)
  Receive Date: 20120125
  Receipt Date: 20120112
  Transmission Date: 20120608
  Serious: Yes (Other)
  Sender: FDA-Public Use
  Company Number: PHHY2011CA111443

PATIENT

DRUGS (1)
  1. SANDOSTATIN LAR [Suspect]
     Indication: ACROMEGALY
     Dosage: 10 MG, QMO
     Route: 030
     Dates: start: 20110518, end: 20111118

REACTIONS (4)
  - DYSGEUSIA [None]
  - NAUSEA [None]
  - CHEST PAIN [None]
  - DYSPNOEA [None]
